FAERS Safety Report 18081437 (Version 1)
Quarter: 2020Q3

REPORT INFORMATION
  Report Type: Report from Study
  Country: None (occurrence: LB)
  Receive Date: 20200728
  Receipt Date: 20200728
  Transmission Date: 20201103
  Serious: Yes (Hospitalization)
  Sender: FDA-Public Use
  Company Number: LB-ABBVIE-20K-093-3498586-00

PATIENT
  Age: 58 Year
  Sex: Male
  Weight: 62 kg

DRUGS (11)
  1. VENCLEXTA [Suspect]
     Active Substance: VENETOCLAX
     Dosage: 50MG (2 DAYS ON 1 DAY OFF)
     Route: 048
     Dates: start: 20180912, end: 20180922
  2. VENCLEXTA [Suspect]
     Active Substance: VENETOCLAX
     Route: 048
     Dates: start: 20181108, end: 201907
  3. GRAVIOLA [Concomitant]
     Indication: PRODUCT USED FOR UNKNOWN INDICATION
     Dates: start: 20181112
  4. VENCLEXTA [Suspect]
     Active Substance: VENETOCLAX
     Route: 048
     Dates: start: 20180904, end: 20180910
  5. VENCLEXTA [Suspect]
     Active Substance: VENETOCLAX
     Dosage: 50MG (2 DAYS ON 1 DAY OFF)
     Route: 048
     Dates: start: 20180924, end: 20181007
  6. ALURIC [Concomitant]
     Indication: PRODUCT USED FOR UNKNOWN INDICATION
     Route: 048
     Dates: start: 20180821
  7. VENCLEXTA [Suspect]
     Active Substance: VENETOCLAX
     Route: 048
     Dates: start: 20180825, end: 20180902
  8. VENCLEXTA [Suspect]
     Active Substance: VENETOCLAX
     Route: 048
     Dates: start: 20181009, end: 20181103
  9. NEXIUM [Concomitant]
     Active Substance: ESOMEPRAZOLE MAGNESIUM
     Indication: PRODUCT USED FOR UNKNOWN INDICATION
     Route: 048
     Dates: start: 20180821
  10. VENCLEXTA [Suspect]
     Active Substance: VENETOCLAX
     Indication: CHRONIC LYMPHOCYTIC LEUKAEMIA
     Route: 048
     Dates: start: 20180820, end: 20180823
  11. VENCLEXTA [Suspect]
     Active Substance: VENETOCLAX
     Route: 048
     Dates: start: 20181105, end: 20181106

REACTIONS (6)
  - Lymphadenopathy [Not Recovered/Not Resolved]
  - Fatigue [Recovering/Resolving]
  - Abdominal distension [Recovering/Resolving]
  - Gastrointestinal inflammation [Recovering/Resolving]
  - Abdominal pain [Recovering/Resolving]
  - Asthenia [Recovering/Resolving]

NARRATIVE: CASE EVENT DATE: 202007
